FAERS Safety Report 21604498 (Version 1)
Quarter: 2022Q4

REPORT INFORMATION
  Report Type: Spontaneous
  Country: US (occurrence: None)
  Receive Date: 20221116
  Receipt Date: 20221116
  Transmission Date: 20230113
  Serious: Yes (Hospitalization)
  Sender: FDA-Public Use
  Company Number: None

PATIENT
  Age: 37 Year
  Sex: Male
  Weight: 83.25 kg

DRUGS (1)
  1. .DELTA.9-TETRAHYDROCANNABINOL ACETATE\HERBALS [Suspect]
     Active Substance: .DELTA.9-TETRAHYDROCANNABINOL ACETATE\HERBALS
     Indication: Substance use
     Dosage: FREQUENCY : AS NEEDED;?
     Route: 048
     Dates: start: 20221112, end: 20221112

REACTIONS (4)
  - Hallucination [None]
  - Tremor [None]
  - Palpitations [None]
  - Tachycardia [None]

NARRATIVE: CASE EVENT DATE: 20221112
